FAERS Safety Report 10009058 (Version 2)
Quarter: 2014Q1

REPORT INFORMATION
  Report Type: Report from Study
  Country: BE (occurrence: BE)
  Receive Date: 20140313
  Receipt Date: 20140313
  Transmission Date: 20141002
  Serious: Yes (Death, Hospitalization, Other)
  Sender: FDA-Public Use
  Company Number: PHHY2013BE082162

PATIENT
  Age: 62 Year
  Sex: Male

DRUGS (6)
  1. CICLOSPORIN [Suspect]
     Indication: RENAL TRANSPLANT
     Dosage: 1 DF,150MG DAILY
     Route: 048
     Dates: start: 20110204
  2. CICLOSPORIN [Suspect]
     Dosage: 100 MG
     Route: 048
  3. CICLOSPORIN [Suspect]
     Dosage: 50 MG
     Route: 048
     Dates: start: 20130222, end: 20131112
  4. PREDNISONE [Suspect]
     Indication: RENAL TRANSPLANT
     Dosage: 5 MG
     Dates: start: 20081120
  5. CELLCEPT [Suspect]
     Indication: RENAL TRANSPLANT
     Dosage: 1500 MG
     Dates: start: 20110309, end: 20131010
  6. SIROLIMUS [Concomitant]
     Dosage: 2 MG
     Dates: start: 20131113

REACTIONS (9)
  - Metastatic malignant melanoma [Fatal]
  - Ulcer haemorrhage [Fatal]
  - Skin lesion [Fatal]
  - Pain [Fatal]
  - Infection [Unknown]
  - Inflammation [Unknown]
  - Purulent discharge [Unknown]
  - VIIth nerve paralysis [Not Recovered/Not Resolved]
  - Seborrhoeic keratosis [Not Recovered/Not Resolved]
